FAERS Safety Report 6357134-4 (Version None)
Quarter: 2009Q3

REPORT INFORMATION
  Report Type: 
  Country: None (occurrence: None)
  Receive Date: 20090910
  Receipt Date: 20090902
  Transmission Date: 20100115
  Serious: Yes (Other)
  Sender: FDA-Public Use
  Company Number: 09-001435

PATIENT
  Age: 17 Year
  Sex: Female
  Weight: 83.9 kg

DRUGS (1)
  1. LOESTRIN 24 FE [Suspect]
     Indication: CONTRACEPTION
     Dosage: 20/1000UG,QD, ORAL
     Route: 048
     Dates: start: 20090301, end: 20090830

REACTIONS (5)
  - EAR PAIN [None]
  - HEADACHE [None]
  - HYPOAESTHESIA [None]
  - VISUAL IMPAIRMENT [None]
  - VOMITING [None]
